FAERS Safety Report 5616446-X (Version None)
Quarter: 2008Q1

REPORT INFORMATION
  Report Type: 
  Country: None (occurrence: None)
  Receive Date: 20080207
  Receipt Date: 20080125
  Transmission Date: 20080703
  Serious: Yes (Other)
  Sender: FDA-Public Use
  Company Number: US-ELI_LILLY_AND_COMPANY-US200801005754

PATIENT
  Sex: Female

DRUGS (12)
  1. ZYPREXA [Suspect]
     Indication: MENTAL DISORDER
     Dosage: 20 MG, 2/D
  2. XANAX [Concomitant]
  3. LIBRIUM [Concomitant]
  4. PAXIL [Concomitant]
  5. LEVOXYL [Concomitant]
  6. LISINOPRIL [Concomitant]
  7. TRICOR [Concomitant]
  8. LIPITOR [Concomitant]
  9. NORFLEX                            /00018303/ [Concomitant]
  10. ALBUTEROL [Concomitant]
  11. OXYGEN [Concomitant]
     Dosage: UNK, AS NEEDED
  12. CODEINE SUL TAB [Concomitant]

REACTIONS (5)
  - GENERAL PHYSICAL HEALTH DETERIORATION [None]
  - PAIN [None]
  - PANCREATITIS [None]
  - STENT PLACEMENT [None]
  - SURGERY [None]
